FAERS Safety Report 15642864 (Version 2)
Quarter: 2018Q4

REPORT INFORMATION
  Report Type: Spontaneous
  Country: US (occurrence: US)
  Receive Date: 20181121
  Receipt Date: 20181227
  Transmission Date: 20190205
  Serious: No
  Sender: FDA-Public Use
  Company Number: US-DRREDDYS-USA/USA/18/0105229

PATIENT
  Age: 59 Year
  Sex: Female
  Weight: 65.09 kg

DRUGS (1)
  1. HABITROL [Suspect]
     Active Substance: NICOTINE
     Indication: SMOKING CESSATION THERAPY
     Route: 062
     Dates: start: 20181030

REACTIONS (5)
  - Nausea [Recovered/Resolved]
  - Abnormal dreams [Recovered/Resolved]
  - Treatment noncompliance [Unknown]
  - Weight decreased [Recovered/Resolved]
  - Hyperhidrosis [Recovered/Resolved]

NARRATIVE: CASE EVENT DATE: 20181030
